FAERS Safety Report 23137854 (Version 2)
Quarter: 2023Q4

REPORT INFORMATION
  Report Type: Spontaneous
  Country: CN (occurrence: CN)
  Receive Date: 20231102
  Receipt Date: 20231123
  Transmission Date: 20240109
  Serious: Yes (Hospitalization)
  Sender: FDA-Public Use
  Company Number: CN-Merck Healthcare KGaA-2023484253

PATIENT
  Age: 67 Year
  Sex: Female

DRUGS (4)
  1. GLUCOPHAGE [Suspect]
     Active Substance: METFORMIN HYDROCHLORIDE
     Indication: Type 2 diabetes mellitus
     Dosage: LATEST MEDICATION DATE BEFORE THE OCCURRENCE OF THE SERIOUS ADVERSE EVENT (SAE) WAS 27-SEP-2023.
     Route: 048
     Dates: start: 20230531
  2. NIFEDIPINE [Concomitant]
     Active Substance: NIFEDIPINE
     Indication: Hypertension
     Dosage: FORM OF ADMIN: SUSTAINED-RELEASE TABLET
     Route: 048
     Dates: start: 2021
  3. ALPRAZOLAM [Concomitant]
     Active Substance: ALPRAZOLAM
     Indication: Sleep disorder
     Route: 048
     Dates: start: 20230719
  4. ATORVASTATIN CALCIUM [Concomitant]
     Active Substance: ATORVASTATIN CALCIUM
     Indication: Lipids increased
     Dosage: ONCE A NIGHT (QN)
     Route: 048

REACTIONS (1)
  - Abdominal pain [Recovered/Resolved]

NARRATIVE: CASE EVENT DATE: 20230928
